FAERS Safety Report 12772075 (Version 2)
Quarter: 2016Q4

REPORT INFORMATION
  Report Type: Spontaneous
  Country: US (occurrence: US)
  Receive Date: 20160922
  Receipt Date: 20161013
  Transmission Date: 20170207
  Serious: No
  Sender: FDA-Public Use
  Company Number: US-WATSON-2015-26750

PATIENT
  Sex: Female

DRUGS (3)
  1. GABAPENTIN (AELLC) [Suspect]
     Active Substance: GABAPENTIN
     Indication: PAIN
     Dosage: UNKNOWN
     Route: 065
  2. LIDOCAINE HYDROCHLORIDE (WATSON LABORATORIES) [Suspect]
     Active Substance: LIDOCAINE HYDROCHLORIDE
     Indication: PAIN
     Dosage: UNK, UNKNOWN
     Route: 062
  3. METHADONE [Suspect]
     Active Substance: METHADONE HYDROCHLORIDE
     Indication: PAIN
     Dosage: UNK, UNKNOWN
     Route: 065

REACTIONS (1)
  - Drug ineffective [Unknown]
